FAERS Safety Report 14459102 (Version 4)
Quarter: 2022Q3

REPORT INFORMATION
  Report Type: Spontaneous
  Country: ES (occurrence: ES)
  Receive Date: 20180130
  Receipt Date: 20220907
  Transmission Date: 20221027
  Serious: Yes (Death, Hospitalization)
  Sender: FDA-Public Use
  Company Number: None

PATIENT
  Age: 92 Year
  Sex: Female

DRUGS (10)
  1. OLANZAPINE [Suspect]
     Active Substance: OLANZAPINE
     Indication: Suicide attempt
     Dosage: 18 MG, UNKNOWN, TOTAL
     Route: 048
     Dates: start: 20170611, end: 20170611
  2. RAMIPRIL [Suspect]
     Active Substance: RAMIPRIL
     Indication: Suicide attempt
     Dosage: 17.5 MG, UNKNOWN,TOTAL
     Route: 048
     Dates: start: 20170611, end: 20170611
  3. PREGABALIN [Suspect]
     Active Substance: PREGABALIN
     Indication: Suicide attempt
     Dosage: 1050 MG, UNKNOWN, TOTAL
     Route: 048
     Dates: start: 20170611, end: 20170611
  4. ACETAMINOPHEN [Suspect]
     Active Substance: ACETAMINOPHEN
     Indication: Suicide attempt
     Dosage: 21 G, UNKNOWN, TOTAL
     Route: 048
     Dates: start: 20170611, end: 20170611
  5. OMEPRAZOLE [Suspect]
     Active Substance: OMEPRAZOLE
     Indication: Suicide attempt
     Dosage: 140 MG, UNKNOWN, TOTAL
     Route: 048
     Dates: start: 20170611, end: 20170611
  6. SIMVASTATIN [Suspect]
     Active Substance: SIMVASTATIN
     Indication: Suicide attempt
     Dosage: 140 MG, UNKNOWN, TOTAL
     Route: 048
     Dates: start: 20170611, end: 20170611
  7. CITALOPRAM [Suspect]
     Active Substance: CITALOPRAM HYDROBROMIDE
     Indication: Suicide attempt
     Dosage: 140 MG, UNKNOWN, TOTAL
     Route: 048
     Dates: start: 20170611, end: 20170611
  8. ZOLPIDEM [Suspect]
     Active Substance: ZOLPIDEM TARTRATE
     Indication: Suicide attempt
     Dosage: 70 MG, UNKNOWN, TOTAL
     Route: 048
     Dates: start: 20170611, end: 20170611
  9. METFORMIN [Suspect]
     Active Substance: METFORMIN HYDROCHLORIDE
     Indication: Suicide attempt
     Dosage: 18 G, UNKNOWN,TOTAL
     Route: 048
     Dates: start: 20170611, end: 20170611
  10. ALPRAZOLAM [Suspect]
     Active Substance: ALPRAZOLAM
     Indication: Suicide attempt
     Dosage: 7 MG, UNKNOWN, TOTAL
     Route: 048
     Dates: start: 20170611, end: 20170611

REACTIONS (3)
  - Completed suicide [Fatal]
  - Intentional overdose [Fatal]
  - Off label use [Unknown]

NARRATIVE: CASE EVENT DATE: 20170611
